FAERS Safety Report 8055106-5 (Version None)
Quarter: 2012Q1

REPORT INFORMATION
  Report Type: 
  Country: None (occurrence: None)
  Receive Date: 20120119
  Receipt Date: 20120109
  Transmission Date: 20120608
  Serious: Yes (Other)
  Sender: FDA-Public Use
  Company Number: US-BAYER-2010-002065

PATIENT
  Age: 21 Year
  Sex: Female
  Weight: 59 kg

DRUGS (6)
  1. BENADRYL [Concomitant]
     Dosage: UNK UNK, PRN
     Route: 048
  2. VALIUM [Concomitant]
     Indication: ANXIETY
     Dosage: UNK
     Dates: start: 20010101
  3. VICODIN [Concomitant]
     Indication: PAIN
     Dosage: UNK UNK, Q4HR
     Route: 048
  4. CIPROFLOXACIN [Concomitant]
     Dosage: 500 MG, BID
     Route: 048
  5. CLARITIN-D [Concomitant]
     Dosage: UNK UNK, PRN
     Route: 048
  6. YASMIN [Suspect]
     Indication: CONTRACEPTION
     Dosage: UNK
     Dates: start: 20050701, end: 20071101

REACTIONS (1)
  - GALLBLADDER INJURY [None]
